FAERS Safety Report 7537363-4 (Version None)
Quarter: 2011Q2

REPORT INFORMATION
  Report Type: 
  Country: None (occurrence: None)
  Receive Date: 20110608
  Receipt Date: 20110608
  Transmission Date: 20111010
  Serious: Yes (Life-Threatening, Hospitalization)
  Sender: FDA-Public Use
  Company Number: None

PATIENT
  Age: 71 Year
  Sex: Male

DRUGS (1)
  1. NITROFURANTOIN [Suspect]
     Dosage: 100 MG BID PO
     Route: 048
     Dates: start: 20110101, end: 20110101

REACTIONS (1)
  - ANAPHYLACTIC REACTION [None]
